FAERS Safety Report 5009254-4 (Version None)
Quarter: 2006Q2

REPORT INFORMATION
  Report Type: 
  Country: None (occurrence: None)
  Receive Date: 20060522
  Receipt Date: 20060511
  Transmission Date: 20061013
  Serious: Yes (Other)
  Sender: FDA-Public Use
  Company Number: 200612331BWH

PATIENT
  Age: 44 Year
  Sex: Female
  Weight: 54.8852 kg

DRUGS (4)
  1. AVELOX [Suspect]
     Indication: SIALOADENITIS
     Dosage: 400 MG, QD, ORAL
     Route: 048
     Dates: start: 20060328, end: 20060329
  2. LEVOTHYROXINE SODIUM [Concomitant]
  3. ERYTHROMYCIN [Concomitant]
  4. AMOXICILLIN [Concomitant]

REACTIONS (20)
  - ANXIETY [None]
  - BLOOD PRESSURE INCREASED [None]
  - CHEST PAIN [None]
  - DIARRHOEA [None]
  - EYE PAIN [None]
  - HEADACHE [None]
  - HEART RATE INCREASED [None]
  - HYPERHIDROSIS [None]
  - HYPOAESTHESIA [None]
  - IMPAIRED WORK ABILITY [None]
  - INSOMNIA [None]
  - MALAISE [None]
  - MIDDLE INSOMNIA [None]
  - NAUSEA [None]
  - POLLAKIURIA [None]
  - TREMOR [None]
  - VISION BLURRED [None]
  - VISUAL ACUITY REDUCED [None]
  - VOMITING [None]
  - WEIGHT DECREASED [None]
